FAERS Safety Report 10494098 (Version 2)
Quarter: 2014Q4

REPORT INFORMATION
  Report Type: Report from Study
  Country: DE (occurrence: DE)
  Receive Date: 20141003
  Receipt Date: 20141201
  Transmission Date: 20150528
  Serious: Yes (Other)
  Sender: FDA-Public Use
  Company Number: DE-BRISTOL-MYERS SQUIBB COMPANY-21433990

PATIENT
  Age: 82 Year
  Sex: Female

DRUGS (2)
  1. NILOTINIB [Suspect]
     Active Substance: NILOTINIB
     Dates: start: 20130503
  2. HYDROXYUREA. [Suspect]
     Active Substance: HYDROXYUREA
     Indication: CHRONIC MYELOID LEUKAEMIA
     Dates: start: 20130424, end: 20130502

REACTIONS (1)
  - Hyperglycaemia [Not Recovered/Not Resolved]

NARRATIVE: CASE EVENT DATE: 20130508
